FAERS Safety Report 18622527 (Version 1)
Quarter: 2020Q4

REPORT INFORMATION
  Report Type: Spontaneous
  Country: US (occurrence: US)
  Receive Date: 20201216
  Receipt Date: 20201216
  Transmission Date: 20210114
  Serious: Yes (Hospitalization, Other)
  Sender: FDA-Public Use
  Company Number: US-PFIZER INC-2020492625

PATIENT
  Age: 85 Year
  Sex: Female
  Weight: 40.78 kg

DRUGS (1)
  1. VANCOMYCIN HCL [Suspect]
     Active Substance: VANCOMYCIN HYDROCHLORIDE
     Dosage: UNK
     Route: 042

REACTIONS (4)
  - Fluid retention [Unknown]
  - Near death experience [Unknown]
  - Nausea [Unknown]
  - Somnolence [Unknown]
